FAERS Safety Report 23720260 (Version 2)
Quarter: 2024Q3

REPORT INFORMATION
  Report Type: Spontaneous
  Country: US (occurrence: US)
  Receive Date: 20240408
  Receipt Date: 20240711
  Transmission Date: 20241017
  Serious: Yes (Life-Threatening, Hospitalization, Disabling, Other)
  Sender: FRESENIUS KABI
  Company Number: US-FreseniusKabi-FK202405400

PATIENT
  Age: 57 Year
  Sex: Male

DRUGS (246)
  1. HEPARIN SODIUM [Suspect]
     Active Substance: HEPARIN SODIUM
     Indication: Product used for unknown indication
     Dosage: INJECTION (NDC NOT DOCUMENTED, DOSE: 2700 UNITS, ROUTE: INTRAVENOUS) FOR UNSPECIFIED INDICATION
  2. HEPARIN SODIUM [Suspect]
     Active Substance: HEPARIN SODIUM
     Indication: Product used for unknown indication
     Dosage: INJECTION (NDC 63323-540-01, DOSE 4000 UNITS, ROUTE: INTRA-CATHETER)
  3. HEPARIN SODIUM [Suspect]
     Active Substance: HEPARIN SODIUM
     Dosage: INJECTION (NDC 63323-540-01, DOSE: 2700 UNITS, ROUTE: INTRAVENOUS) TO PACK DIALYSIS CATH?FREQUENCY:
  4. HEPARIN SODIUM [Suspect]
     Active Substance: HEPARIN SODIUM
     Dosage: INJECTION (NDC 63323-540-01, DOSE: 2700 UNITS, ROUTE: INTRAVENOUS) TO PACK HD CATH POST HD
  5. HEPARIN SODIUM [Suspect]
     Active Substance: HEPARIN SODIUM
     Dosage: INJECTION (NDC 63323-540-03, DOSE: 2700 UNITS, ROUTE: INTRAVENOUS)
  6. HEPARIN SODIUM [Suspect]
     Active Substance: HEPARIN SODIUM
     Dosage: INJECTION (NDC 63323-540-03, DOSE: 2700 UNITS, ROUTE: INTRAVENOUS) TO HEP LOCK DIALYSIS ACCESS BY RN
  7. HEPARIN SODIUM [Suspect]
     Active Substance: HEPARIN SODIUM
     Dosage: INJECTION (NDC 63323-540-03, DOSE: 2700 UNITS, ROUTE: INTRAVENOUS) FOR HD CATH PACKED POST TX
  8. HEPARIN SODIUM [Suspect]
     Active Substance: HEPARIN SODIUM
     Dosage: INJECTION (NDC 63323-540-01, DOSE 5000 UNITS, ROUTE: INTRAVENOUS) TO HEPARIN LOCK HD CATHETER
  9. HEPARIN SODIUM [Suspect]
     Active Substance: HEPARIN SODIUM
     Dosage: INJECTION (NDC 63323-540-03, DOSE 3000 UNITS, ROUTE: INTRA-CATHETER) TO HEPLOCK HD CATH
  10. HEPARIN SODIUM [Suspect]
     Active Substance: HEPARIN SODIUM
     Dosage: INJECTION (NDC 63323-540-03, DOSE 3000 UNITS, ROUTE: INTRA-CATHETER) FOR UNSPECIFIED INDICATION
  11. HEPARIN SODIUM [Suspect]
     Active Substance: HEPARIN SODIUM
     Dosage: INJECTION (NDC 63323-540-03, DOSE 3000 UNITS, ROUTE: INTRA-CATHETER) FOR UNSPECIFIED INDICATION
  12. HEPARIN SODIUM [Suspect]
     Active Substance: HEPARIN SODIUM
     Dosage: INJECTION (NDC 63323-540-03, DOSE: 1500 UNITS, ROUTE: INTRA-CATHETER) TO HEPARIN LOCK BLUE PORT ON H
  13. LEVOPHED [Suspect]
     Active Substance: NOREPINEPHRINE BITARTRATE
     Indication: Product used for unknown indication
     Dosage: DOSE: EXCESSIVE AMOUNT (NOS)
  14. HEPARIN SODIUM [Suspect]
     Active Substance: HEPARIN SODIUM
     Indication: Product used for unknown indication
     Dosage: (NDC 0409-2720-30, DOSE: 2700 UNITS, ROUTE: INTRAVENOUS) FOR AN UNSPECIFIED INDICATION
  15. HEPARIN SODIUM [Suspect]
     Active Substance: HEPARIN SODIUM
     Dosage: (NDC 0409-2720-30, DOSE: 4000 UNITS, ROUTE: INTRAVENOUS) FOR AN UNSPECIFIED INDICATION
  16. HEPARIN SODIUM [Suspect]
     Active Substance: HEPARIN SODIUM
     Dosage: (NDC 0409-2720-30, DOSE: 2700 UNITS, ROUTE: INTRAVENOUS) FOR AN UNSPECIFIED INDICATION
  17. HEPARIN SODIUM [Suspect]
     Active Substance: HEPARIN SODIUM
     Dosage: (NDC 0409-2720-30, DOSE: 2700 UNITS, ROUTE: INTRAVENOUS) TO PACK HD CATH POST DIALYSIS
  18. HEPARIN SODIUM [Suspect]
     Active Substance: HEPARIN SODIUM
     Dosage: (NDC 0409-2720-30, DOSE: 2700 UNITS, ROUTE: INTRAVENOUS) TO PACK HD CATH POST HD
  19. HYDROMORPHONE [Concomitant]
     Active Substance: HYDROMORPHONE
     Indication: Product used for unknown indication
     Dosage: ROUTE: INTRAVENOUS
  20. HYDROMORPHONE [Concomitant]
     Active Substance: HYDROMORPHONE
     Dosage: ROUTE: INTRAVENOUS
  21. HYDROMORPHONE [Concomitant]
     Active Substance: HYDROMORPHONE
     Dosage: ROUTE: INTRAVENOUS
  22. HYDROMORPHONE [Concomitant]
     Active Substance: HYDROMORPHONE
     Dosage: ROUTE: INTRAVENOUS
  23. HYDROMORPHONE [Concomitant]
     Active Substance: HYDROMORPHONE
     Dosage: ROUTE: INTRAVENOUS
  24. HYDROMORPHONE [Concomitant]
     Active Substance: HYDROMORPHONE
     Dosage: ROUTE: INTRAVENOUS
  25. HYDROMORPHONE [Concomitant]
     Active Substance: HYDROMORPHONE
     Dosage: ROUTE: INTRAVENOUS
  26. HYDROMORPHONE [Concomitant]
     Active Substance: HYDROMORPHONE
     Dosage: ROUTE: INTRAVENOUS
  27. HYDROMORPHONE [Concomitant]
     Active Substance: HYDROMORPHONE
     Dosage: ROUTE: INTRAVENOUS
  28. HYDROMORPHONE [Concomitant]
     Active Substance: HYDROMORPHONE
     Dosage: ROUTE: INTRAVENOUS
  29. HYDROMORPHONE [Concomitant]
     Active Substance: HYDROMORPHONE
     Dosage: ROUTE: INTRAVENOUS
  30. HYDROMORPHONE [Concomitant]
     Active Substance: HYDROMORPHONE
     Dosage: ROUTE: INTRAVENOUS
  31. HYDROMORPHONE [Concomitant]
     Active Substance: HYDROMORPHONE
     Dosage: ROUTE: INTRAVENOUS
  32. HYDROMORPHONE [Concomitant]
     Active Substance: HYDROMORPHONE
     Dosage: ROUTE: INTRAVENOUS
  33. HYDROMORPHONE [Concomitant]
     Active Substance: HYDROMORPHONE
     Dosage: ROUTE: INTRAVENOUS
  34. HYDROMORPHONE [Concomitant]
     Active Substance: HYDROMORPHONE
     Dosage: ROUTE: INTRAVENOUS
  35. HYDROMORPHONE [Concomitant]
     Active Substance: HYDROMORPHONE
     Dosage: ROUTE: INTRAVENOUS
  36. HYDROMORPHONE [Concomitant]
     Active Substance: HYDROMORPHONE
     Dosage: ROUTE: INTRAVENOUS
  37. LACTULOSE [Concomitant]
     Active Substance: LACTULOSE
     Indication: Product used for unknown indication
     Dosage: ROUTE: ORAL
  38. LIDOCAINE [Concomitant]
     Active Substance: LIDOCAINE
     Indication: Product used for unknown indication
     Dosage: ROUTE: INTRAVENOUS?DRUG START DATE: 26-SEP-2020 07:01:00
  39. XYLOCAINE [Concomitant]
     Active Substance: LIDOCAINE HYDROCHLORIDE\LIDOCAINE HYDROCHLORIDE ANHYDROUS
     Indication: Product used for unknown indication
     Dosage: ROUTE: INTRAVENOUS
  40. MEROPENEM [Concomitant]
     Active Substance: MEROPENEM
     Indication: Product used for unknown indication
     Dosage: ROUTE: INTRAVENOUS
  41. MEROPENEM [Concomitant]
     Active Substance: MEROPENEM
     Dosage: ROUTE: INTRAVENOUS
  42. MEROPENEM [Concomitant]
     Active Substance: MEROPENEM
     Dosage: ROUTE: INTRAVENOUS
  43. MEROPENEM [Concomitant]
     Active Substance: MEROPENEM
     Dosage: ROUTE: INTRAVENOUS
  44. MEROPENEM [Concomitant]
     Active Substance: MEROPENEM
     Dosage: ROUTE: INTRAVENOUS
  45. MEROPENEM [Concomitant]
     Active Substance: MEROPENEM
     Dosage: ROUTE: INTRAVENOUS
  46. MEROPENEM [Concomitant]
     Active Substance: MEROPENEM
     Dosage: ROUTE: INTRAVENOUS
  47. MEROPENEM [Concomitant]
     Active Substance: MEROPENEM
     Dosage: ROUTE: INTRAVENOUS
  48. MEROPENEM [Concomitant]
     Active Substance: MEROPENEM
     Dosage: ROUTE: INTRAVENOUS
  49. MEROPENEM [Concomitant]
     Active Substance: MEROPENEM
     Dosage: ROUTE: INTRAVENOUS
  50. MEROPENEM [Concomitant]
     Active Substance: MEROPENEM
     Dosage: ROUTE: INTRAVENOUS
  51. MEROPENEM [Concomitant]
     Active Substance: MEROPENEM
     Dosage: ROUTE: INTRAVENOUS
  52. MEROPENEM [Concomitant]
     Active Substance: MEROPENEM
     Dosage: ROUTE: INTRAVENOUS
  53. MEROPENEM [Concomitant]
     Active Substance: MEROPENEM
     Dosage: ROUTE: INTRAVENOUS
  54. MEROPENEM [Concomitant]
     Active Substance: MEROPENEM
     Dosage: ROUTE: INTRAVENOUS
  55. MEROPENEM [Concomitant]
     Active Substance: MEROPENEM
     Dosage: ROUTE: INTRAVENOUS
  56. MEROPENEM [Concomitant]
     Active Substance: MEROPENEM
     Dosage: ROUTE: INTRAVENOUS
  57. MEROPENEM [Concomitant]
     Active Substance: MEROPENEM
     Dosage: ROUTE: INTRAVENOUS
  58. MEROPENEM [Concomitant]
     Active Substance: MEROPENEM
     Dosage: ROUTE: INTRAVENOUS
  59. MEROPENEM [Concomitant]
     Active Substance: MEROPENEM
     Dosage: ROUTE: INTRAVENOUS
  60. MEROPENEM [Concomitant]
     Active Substance: MEROPENEM
     Dosage: ROUTE: INTRAVENOUS
  61. MEROPENEM [Concomitant]
     Active Substance: MEROPENEM
     Dosage: ROUTE: INTRAVENOUS
  62. MEROPENEM [Concomitant]
     Active Substance: MEROPENEM
     Dosage: ROUTE: INTRAVENOUS
  63. MEROPENEM [Concomitant]
     Active Substance: MEROPENEM
     Dosage: ROUTE: INTRAVENOUS
  64. MEROPENEM [Concomitant]
     Active Substance: MEROPENEM
     Dosage: ROUTE: INTRAVENOUS
  65. MEROPENEM [Concomitant]
     Active Substance: MEROPENEM
     Dosage: ROUTE: INTRAVENOUS
  66. MEROPENEM [Concomitant]
     Active Substance: MEROPENEM
     Dosage: ROUTE: INTRAVENOUS
  67. MEROPENEM [Concomitant]
     Active Substance: MEROPENEM
     Dosage: ROUTE: INTRAVENOUS
  68. MEROPENEM [Concomitant]
     Active Substance: MEROPENEM
     Dosage: ROUTE: INTRAVENOUS
  69. MEROPENEM [Concomitant]
     Active Substance: MEROPENEM
     Dosage: ROUTE: INTRAVENOUS
  70. MEROPENEM [Concomitant]
     Active Substance: MEROPENEM
     Dosage: ROUTE: INTRAVENOUS
  71. MEROPENEM [Concomitant]
     Active Substance: MEROPENEM
     Dosage: ROUTE: INTRAVENOUS
  72. MEROPENEM [Concomitant]
     Active Substance: MEROPENEM
     Dosage: ROUTE: INTRAVENOUS
  73. MEROPENEM [Concomitant]
     Active Substance: MEROPENEM
     Dosage: ROUTE: INTRAVENOUS
  74. MEROPENEM [Concomitant]
     Active Substance: MEROPENEM
     Dosage: ROUTE: INTRAVENOUS
  75. MEROPENEM [Concomitant]
     Active Substance: MEROPENEM
     Dosage: ROUTE: INTRAVENOUS
  76. MEROPENEM [Concomitant]
     Active Substance: MEROPENEM
     Dosage: ROUTE: INTRAVENOUS
  77. MEROPENEM [Concomitant]
     Active Substance: MEROPENEM
     Dosage: ROUTE: INTRAVENOUS
  78. MEROPENEM [Concomitant]
     Active Substance: MEROPENEM
     Dosage: ROUTE: INTRAVENOUS
  79. MEROPENEM [Concomitant]
     Active Substance: MEROPENEM
     Dosage: ROUTE: INTRAVENOUS
  80. MEROPENEM [Concomitant]
     Active Substance: MEROPENEM
     Dosage: ROUTE: INTRAVENOUS
  81. MEROPENEM [Concomitant]
     Active Substance: MEROPENEM
     Dosage: ROUTE: INTRAVENOUS
  82. MEROPENEM [Concomitant]
     Active Substance: MEROPENEM
     Dosage: ROUTE: INTRAVENOUS
  83. MEROPENEM [Concomitant]
     Active Substance: MEROPENEM
     Dosage: ROUTE: INTRAVENOUS
  84. MEROPENEM [Concomitant]
     Active Substance: MEROPENEM
     Dosage: ROUTE: INTRAVENOUS
  85. MEROPENEM [Concomitant]
     Active Substance: MEROPENEM
     Dosage: ROUTE: INTRAVENOUS
  86. MEROPENEM [Concomitant]
     Active Substance: MEROPENEM
     Dosage: ROUTE: INTRAVENOUS
  87. MEROPENEM [Concomitant]
     Active Substance: MEROPENEM
     Dosage: ROUTE: INTRAVENOUS
  88. MEROPENEM [Concomitant]
     Active Substance: MEROPENEM
     Dosage: ROUTE: INTRAVENOUS
  89. MEROPENEM [Concomitant]
     Active Substance: MEROPENEM
     Dosage: ROUTE: INTRAVENOUS
  90. MEROPENEM [Concomitant]
     Active Substance: MEROPENEM
     Dosage: ROUTE: INTRAVENOUS
  91. MEROPENEM [Concomitant]
     Active Substance: MEROPENEM
     Dosage: ROUTE: INTRAVENOUS
  92. MEROPENEM [Concomitant]
     Active Substance: MEROPENEM
     Dosage: ROUTE: INTRAVENOUS
  93. MEROPENEM [Concomitant]
     Active Substance: MEROPENEM
     Dosage: ROUTE: INTRAVENOUS
  94. MEROPENEM [Concomitant]
     Active Substance: MEROPENEM
     Dosage: ROUTE: INTRAVENOUS
  95. MEROPENEM [Concomitant]
     Active Substance: MEROPENEM
     Dosage: ROUTE: INTRAVENOUS
  96. MEROPENEM [Concomitant]
     Active Substance: MEROPENEM
     Dosage: ROUTE: INTRAVENOUS
  97. MEROPENEM [Concomitant]
     Active Substance: MEROPENEM
     Dosage: ROUTE: INTRAVENOUS
  98. MEROPENEM [Concomitant]
     Active Substance: MEROPENEM
     Dosage: ROUTE: INTRAVENOUS
  99. MEROPENEM [Concomitant]
     Active Substance: MEROPENEM
     Dosage: ROUTE: INTRAVENOUS
  100. MEROPENEM [Concomitant]
     Active Substance: MEROPENEM
     Dosage: ROUTE: INTRAVENOUS
  101. MEROPENEM [Concomitant]
     Active Substance: MEROPENEM
     Dosage: ROUTE: INTRAVENOUS
  102. MEROPENEM [Concomitant]
     Active Substance: MEROPENEM
     Dosage: ROUTE: INTRAVENOUS
  103. MEROPENEM [Concomitant]
     Active Substance: MEROPENEM
     Dosage: ROUTE: INTRAVENOUS
  104. MEROPENEM [Concomitant]
     Active Substance: MEROPENEM
     Dosage: ROUTE: INTRAVENOUS
  105. MEROPENEM [Concomitant]
     Active Substance: MEROPENEM
     Dosage: ROUTE: INTRAVENOUS
  106. MEROPENEM [Concomitant]
     Active Substance: MEROPENEM
     Dosage: ROUTE: INTRAVENOUS
  107. MEROPENEM [Concomitant]
     Active Substance: MEROPENEM
     Dosage: ROUTE: INTRAVENOUS
  108. METOCLOPRAMIDE [Concomitant]
     Active Substance: METOCLOPRAMIDE
     Indication: Product used for unknown indication
     Dosage: ROUTE: INTRAVENOUS
  109. METOCLOPRAMIDE [Concomitant]
     Active Substance: METOCLOPRAMIDE
     Dosage: ROUTE: INTRAVENOUS
  110. MORPHINE [Concomitant]
     Active Substance: MORPHINE
     Indication: Product used for unknown indication
     Dosage: ROUTE: INTRAVENOUS
  111. MORPHINE [Concomitant]
     Active Substance: MORPHINE
     Dosage: ROUTE: INTRAVENOUS
  112. MORPHINE [Concomitant]
     Active Substance: MORPHINE
     Dosage: ROUTE: INTRAVENOUS
  113. MORPHINE [Concomitant]
     Active Substance: MORPHINE
     Dosage: ROUTE: INTRAVENOUS
  114. MORPHINE [Concomitant]
     Active Substance: MORPHINE
     Dosage: ROUTE: INTRAVENOUS
  115. MORPHINE [Concomitant]
     Active Substance: MORPHINE
     Dosage: ROUTE: INTRAVENOUS
  116. MORPHINE [Concomitant]
     Active Substance: MORPHINE
     Dosage: ROUTE: INTRAVENOUS
  117. MORPHINE [Concomitant]
     Active Substance: MORPHINE
     Dosage: ROUTE: INTRAVENOUS
  118. MORPHINE [Concomitant]
     Active Substance: MORPHINE
     Dosage: ROUTE: INTRAVENOUS
  119. MORPHINE [Concomitant]
     Active Substance: MORPHINE
     Dosage: ROUTE: INTRAVENOUS
  120. MORPHINE [Concomitant]
     Active Substance: MORPHINE
     Dosage: ROUTE: INTRAVENOUS
  121. MORPHINE [Concomitant]
     Active Substance: MORPHINE
     Dosage: ROUTE: INTRAVENOUS
  122. MORPHINE [Concomitant]
     Active Substance: MORPHINE
     Dosage: ROUTE: INTRAVENOUS
  123. MORPHINE [Concomitant]
     Active Substance: MORPHINE
     Dosage: ROUTE: INTRAVENOUS
  124. MORPHINE [Concomitant]
     Active Substance: MORPHINE
     Dosage: ROUTE: INTRAVENOUS
  125. MORPHINE [Concomitant]
     Active Substance: MORPHINE
     Dosage: ROUTE: INTRAVENOUS
  126. MORPHINE [Concomitant]
     Active Substance: MORPHINE
     Dosage: ROUTE: INTRAVENOUS
  127. MORPHINE [Concomitant]
     Active Substance: MORPHINE
     Dosage: ROUTE: INTRAVENOUS
  128. MORPHINE [Concomitant]
     Active Substance: MORPHINE
     Dosage: ROUTE: INTRAVENOUS
  129. MORPHINE [Concomitant]
     Active Substance: MORPHINE
     Dosage: ROUTE: INTRAVENOUS
  130. MORPHINE [Concomitant]
     Active Substance: MORPHINE
     Dosage: ROUTE: INTRAVENOUS
  131. MORPHINE [Concomitant]
     Active Substance: MORPHINE
     Dosage: ROUTE: INTRAVENOUS
  132. MORPHINE [Concomitant]
     Active Substance: MORPHINE
     Dosage: ROUTE: INTRAVENOUS
  133. MORPHINE [Concomitant]
     Active Substance: MORPHINE
     Dosage: ROUTE: INTRAVENOUS
  134. MORPHINE [Concomitant]
     Active Substance: MORPHINE
     Dosage: ROUTE: INTRAVENOUS
  135. MORPHINE [Concomitant]
     Active Substance: MORPHINE
     Dosage: ROUTE: INTRAVENOUS
  136. MORPHINE [Concomitant]
     Active Substance: MORPHINE
     Dosage: ROUTE: INTRAVENOUS
  137. MORPHINE [Concomitant]
     Active Substance: MORPHINE
     Dosage: ROUTE: INTRAVENOUS
  138. MORPHINE [Concomitant]
     Active Substance: MORPHINE
     Dosage: ROUTE: INTRAVENOUS
  139. MORPHINE [Concomitant]
     Active Substance: MORPHINE
     Dosage: ROUTE: INTRAVENOUS
  140. MORPHINE [Concomitant]
     Active Substance: MORPHINE
     Dosage: ROUTE: INTRAVENOUS
  141. MORPHINE [Concomitant]
     Active Substance: MORPHINE
     Dosage: ROUTE: INTRAVENOUS
  142. MORPHINE [Concomitant]
     Active Substance: MORPHINE
     Dosage: ROUTE: INTRAVENOUS
  143. MORPHINE [Concomitant]
     Active Substance: MORPHINE
     Dosage: ROUTE: INTRAVENOUS
  144. MORPHINE [Concomitant]
     Active Substance: MORPHINE
     Dosage: ROUTE: INTRAVENOUS
  145. MORPHINE [Concomitant]
     Active Substance: MORPHINE
     Dosage: ROUTE: INTRAVENOUS
  146. MORPHINE [Concomitant]
     Active Substance: MORPHINE
     Dosage: ROUTE: INTRAVENOUS
  147. MORPHINE [Concomitant]
     Active Substance: MORPHINE
     Dosage: ROUTE: INTRAVENOUS
  148. MORPHINE [Concomitant]
     Active Substance: MORPHINE
     Dosage: ROUTE: INTRAVENOUS
  149. MORPHINE [Concomitant]
     Active Substance: MORPHINE
     Dosage: ROUTE: INTRAVENOUS
  150. MORPHINE [Concomitant]
     Active Substance: MORPHINE
     Dosage: ROUTE: INTRAVENOUS
  151. MORPHINE [Concomitant]
     Active Substance: MORPHINE
     Dosage: ROUTE: INTRAVENOUS
  152. MORPHINE [Concomitant]
     Active Substance: MORPHINE
     Dosage: ROUTE: INTRAVENOUS
  153. MORPHINE [Concomitant]
     Active Substance: MORPHINE
     Dosage: ROUTE: INTRAVENOUS
  154. MORPHINE [Concomitant]
     Active Substance: MORPHINE
     Dosage: ROUTE: INTRAVENOUS
  155. MORPHINE [Concomitant]
     Active Substance: MORPHINE
     Dosage: ROUTE: INTRAVENOUS
  156. MORPHINE [Concomitant]
     Active Substance: MORPHINE
     Dosage: ROUTE: INTRAVENOUS
  157. MORPHINE [Concomitant]
     Active Substance: MORPHINE
     Dosage: ROUTE: INTRAVENOUS
  158. MORPHINE [Concomitant]
     Active Substance: MORPHINE
     Dosage: ROUTE: INTRAVENOUS
  159. MORPHINE [Concomitant]
     Active Substance: MORPHINE
     Dosage: ROUTE: INTRAVENOUS
  160. MORPHINE [Concomitant]
     Active Substance: MORPHINE
     Dosage: ROUTE: INTRAVENOUS
  161. MORPHINE [Concomitant]
     Active Substance: MORPHINE
     Dosage: ROUTE: INTRAVENOUS
  162. MORPHINE [Concomitant]
     Active Substance: MORPHINE
     Dosage: ROUTE: INTRAVENOUS
  163. MORPHINE [Concomitant]
     Active Substance: MORPHINE
     Dosage: ROUTE: INTRAVENOUS
  164. MORPHINE [Concomitant]
     Active Substance: MORPHINE
     Dosage: ROUTE: INTRAVENOUS
  165. MORPHINE [Concomitant]
     Active Substance: MORPHINE
     Dosage: ROUTE: INTRAVENOUS
  166. MORPHINE [Concomitant]
     Active Substance: MORPHINE
     Dosage: ROUTE: INTRAVENOUS
  167. MORPHINE [Concomitant]
     Active Substance: MORPHINE
     Dosage: ROUTE: INTRAVENOUS
  168. MORPHINE [Concomitant]
     Active Substance: MORPHINE
     Dosage: ROUTE: INTRAVENOUS
  169. MORPHINE [Concomitant]
     Active Substance: MORPHINE
     Dosage: ROUTE: INTRAVENOUS
  170. MORPHINE [Concomitant]
     Active Substance: MORPHINE
     Dosage: ROUTE: INTRAVENOUS
  171. MORPHINE [Concomitant]
     Active Substance: MORPHINE
     Dosage: ROUTE: INTRAVENOUS
  172. MORPHINE [Concomitant]
     Active Substance: MORPHINE
     Dosage: ROUTE: INTRAVENOUS
  173. MORPHINE [Concomitant]
     Active Substance: MORPHINE
     Dosage: ROUTE: INTRAVENOUS
  174. DIPRIVAN [Concomitant]
     Active Substance: ISOPROPYL ALCOHOL\PROPOFOL
     Indication: Product used for unknown indication
     Dosage: ROUTE: INTRAVENOUS AT 4.8 ML/HR
  175. DIPRIVAN [Concomitant]
     Active Substance: ISOPROPYL ALCOHOL\PROPOFOL
     Dosage: ROUTE: INTRAVENOUS AT 4.8 ML/HR, RATE/DOSE CHANGE
  176. DIPRIVAN [Concomitant]
     Active Substance: ISOPROPYL ALCOHOL\PROPOFOL
     Dosage: ROUTE: INTRAVENOUS AT 9.5 ML/HR, RATE/DOSE CHANGE
  177. DIPRIVAN [Concomitant]
     Active Substance: ISOPROPYL ALCOHOL\PROPOFOL
     Dosage: ROUTE: INTRAVENOUS AT 14.3 ML/HR, RATE/DOSE CHANGE
  178. DIPRIVAN [Concomitant]
     Active Substance: ISOPROPYL ALCOHOL\PROPOFOL
     Dosage: ROUTE: INTRAVENOUS AT 4.8 ML/HR, NEW BAG
  179. DIPRIVAN [Concomitant]
     Active Substance: ISOPROPYL ALCOHOL\PROPOFOL
     Dosage: ROUTE: INTRAVENOUS AT 2.4 ML/HR, NEW BAG
  180. DIPRIVAN [Concomitant]
     Active Substance: ISOPROPYL ALCOHOL\PROPOFOL
     Dosage: ROUTE: INTRAVENOUS AT 4.8 ML/HR, RATE/DOSE CHANGE
  181. DIPRIVAN [Concomitant]
     Active Substance: ISOPROPYL ALCOHOL\PROPOFOL
     Dosage: ROUTE: INTRAVENOUS AT 9.5 ML/HR, NEW BAG
  182. DIPRIVAN [Concomitant]
     Active Substance: ISOPROPYL ALCOHOL\PROPOFOL
     Dosage: ROUTE: INTRAVENOUS AT 9.5 ML/HR, RESTARTED
  183. DIPRIVAN [Concomitant]
     Active Substance: ISOPROPYL ALCOHOL\PROPOFOL
     Dosage: ROUTE: INTRAVENOUS AT 9.5 ML/HR, NEW BAG
  184. DIPRIVAN [Concomitant]
     Active Substance: ISOPROPYL ALCOHOL\PROPOFOL
     Dosage: ROUTE: INTRAVENOUS AT 14.3 ML/HR, NEW BAG
  185. DIPRIVAN [Concomitant]
     Active Substance: ISOPROPYL ALCOHOL\PROPOFOL
     Dosage: ROUTE: INTRAVENOUS AT 14.3 ML/HR, NEW BAG
  186. DIPRIVAN [Concomitant]
     Active Substance: ISOPROPYL ALCOHOL\PROPOFOL
     Dosage: ROUTE: INTRAVENOUS AT 14.3 ML/HR, RESTARTED
  187. DIPRIVAN [Concomitant]
     Active Substance: ISOPROPYL ALCOHOL\PROPOFOL
     Dosage: ROUTE: INTRAVENOUS AT 4.8 ML/HR, RATE/DOSE CHANGE
  188. DIPRIVAN [Concomitant]
     Active Substance: ISOPROPYL ALCOHOL\PROPOFOL
     Dosage: ROUTE: INTRAVENOUS AT 9.5 ML/HR, RATE/DOSE CHANGE
  189. DIPRIVAN [Concomitant]
     Active Substance: ISOPROPYL ALCOHOL\PROPOFOL
     Dosage: ROUTE: INTRAVENOUS AT 14.3 ML/HR, NEW BAG
  190. DIPRIVAN [Concomitant]
     Active Substance: ISOPROPYL ALCOHOL\PROPOFOL
     Dosage: ROUTE: INTRAVENOUS AT 16.7 ML/HR, NEW BAG
  191. DIPRIVAN [Concomitant]
     Active Substance: ISOPROPYL ALCOHOL\PROPOFOL
     Dosage: ROUTE: INTRAVENOUS AT 14.3 ML/HR, NEW BAG
  192. DIPRIVAN [Concomitant]
     Active Substance: ISOPROPYL ALCOHOL\PROPOFOL
     Dosage: ROUTE: INTRAVENOUS AT 14.3 ML/HR, RATE/DOSE CHANGED
  193. DIPRIVAN [Concomitant]
     Active Substance: ISOPROPYL ALCOHOL\PROPOFOL
     Dosage: ROUTE: INTRAVENOUS AT 11.9 ML/HR, NEW BAG
  194. DIPRIVAN [Concomitant]
     Active Substance: ISOPROPYL ALCOHOL\PROPOFOL
     Dosage: ROUTE: INTRAVENOUS AT 11.9 ML/HR, RATE/DOSE CHANGE
  195. DIPRIVAN [Concomitant]
     Active Substance: ISOPROPYL ALCOHOL\PROPOFOL
     Dosage: ROUTE: INTRAVENOUS AT 16.7 ML/HR, RATE/DOSE CHANGE
  196. DIPRIVAN [Concomitant]
     Active Substance: ISOPROPYL ALCOHOL\PROPOFOL
     Dosage: ROUTE: INTRAVENOUS AT 14.3 ML/HR, RATE/DOSE CHANGE
  197. DIPRIVAN [Concomitant]
     Active Substance: ISOPROPYL ALCOHOL\PROPOFOL
     Dosage: ROUTE: INTRAVENOUS AT 16.7 ML/HR, RATE/DOSE CHANGE
  198. DIPRIVAN [Concomitant]
     Active Substance: ISOPROPYL ALCOHOL\PROPOFOL
     Dosage: ROUTE: INTRAVENOUS AT 16.7 ML/HR, NEW BAG
  199. DIPRIVAN [Concomitant]
     Active Substance: ISOPROPYL ALCOHOL\PROPOFOL
     Dosage: ROUTE: INTRAVENOUS AT 16.7 ML/HR, RATE/DOSE CHANGE
  200. DIPRIVAN [Concomitant]
     Active Substance: ISOPROPYL ALCOHOL\PROPOFOL
     Dosage: ROUTE: INTRAVENOUS AT 9.5 ML/HR, NEW BAG
  201. DIPRIVAN [Concomitant]
     Active Substance: ISOPROPYL ALCOHOL\PROPOFOL
     Dosage: ROUTE: INTRAVENOUS AT 6.7 ML/HR, NEW BAG
  202. QUETIAPINE [Concomitant]
     Active Substance: QUETIAPINE
     Indication: Product used for unknown indication
     Dosage: ROUTE: ORAL
  203. CALCIUM GLUCONATE [Concomitant]
     Active Substance: CALCIUM GLUCONATE
     Indication: Product used for unknown indication
     Dosage: ROUTE: INTRAVENOUS AT 100 ML/HR
  204. CALCIUM GLUCONATE [Concomitant]
     Active Substance: CALCIUM GLUCONATE
     Dosage: ROUTE: INTRAVENOUS AT 100 ML/HR
  205. CALCIUM GLUCONATE [Concomitant]
     Active Substance: CALCIUM GLUCONATE
  206. CALCIUM GLUCONATE [Concomitant]
     Active Substance: CALCIUM GLUCONATE
  207. CALCIUM GLUCONATE [Concomitant]
     Active Substance: CALCIUM GLUCONATE
  208. CALCIUM GLUCONATE [Concomitant]
     Active Substance: CALCIUM GLUCONATE
  209. CALCIUM GLUCONATE [Concomitant]
     Active Substance: CALCIUM GLUCONATE
  210. CALCIUM GLUCONATE [Concomitant]
     Active Substance: CALCIUM GLUCONATE
  211. CALCIUM GLUCONATE [Concomitant]
     Active Substance: CALCIUM GLUCONATE
  212. CALCIUM GLUCONATE [Concomitant]
     Active Substance: CALCIUM GLUCONATE
  213. DIGOXIN [Concomitant]
     Active Substance: DIGOXIN
     Indication: Product used for unknown indication
     Dosage: ROUTE: INTRAVENOUS
  214. DIPHENHYDRAMINE [Concomitant]
     Active Substance: DIPHENHYDRAMINE
     Indication: Product used for unknown indication
     Dosage: ROUTE: INTRAVENOUS
  215. DIPHENHYDRAMINE [Concomitant]
     Active Substance: DIPHENHYDRAMINE
     Dosage: ROUTE: INTRAVENOUS
  216. DIPHENHYDRAMINE [Concomitant]
     Active Substance: DIPHENHYDRAMINE
     Dosage: ROUTE: INTRAVENOUS
  217. DIPHENHYDRAMINE [Concomitant]
     Active Substance: DIPHENHYDRAMINE
     Dosage: ROUTE: INTRAVENOUS
  218. DIPHENHYDRAMINE [Concomitant]
     Active Substance: DIPHENHYDRAMINE
     Dosage: ROUTE: INTRAVENOUS
  219. DIPHENHYDRAMINE [Concomitant]
     Active Substance: DIPHENHYDRAMINE
     Dosage: ROUTE: INTRAVENOUS
  220. DIPHENHYDRAMINE [Concomitant]
     Active Substance: DIPHENHYDRAMINE
     Dosage: ROUTE: INTRAVENOUS
  221. DIPHENHYDRAMINE [Concomitant]
     Active Substance: DIPHENHYDRAMINE
     Dosage: ROUTE: INTRAVENOUS
  222. DIPHENHYDRAMINE [Concomitant]
     Active Substance: DIPHENHYDRAMINE
     Dosage: ROUTE: INTRAVENOUS
  223. DIPHENHYDRAMINE [Concomitant]
     Active Substance: DIPHENHYDRAMINE
     Dosage: ROUTE: INTRAVENOUS
  224. DIPHENHYDRAMINE [Concomitant]
     Active Substance: DIPHENHYDRAMINE
     Dosage: ROUTE: INTRAVENOUS
  225. DIPHENHYDRAMINE [Concomitant]
     Active Substance: DIPHENHYDRAMINE
     Dosage: ROUTE: INTRAVENOUS
  226. DIPHENHYDRAMINE [Concomitant]
     Active Substance: DIPHENHYDRAMINE
     Dosage: ROUTE: INTRAVENOUS
  227. DIPHENHYDRAMINE [Concomitant]
     Active Substance: DIPHENHYDRAMINE
     Dosage: ROUTE: INTRAVENOUS
  228. DIPHENHYDRAMINE [Concomitant]
     Active Substance: DIPHENHYDRAMINE
     Dosage: ROUTE: INTRAVENOUS
  229. DIPHENHYDRAMINE [Concomitant]
     Active Substance: DIPHENHYDRAMINE
     Dosage: ROUTE: INTRAVENOUS
  230. DIPHENHYDRAMINE [Concomitant]
     Active Substance: DIPHENHYDRAMINE
     Dosage: ROUTE: INTRAVENOUS
  231. DIPHENHYDRAMINE [Concomitant]
     Active Substance: DIPHENHYDRAMINE
     Dosage: ROUTE: INTRAVENOUS
  232. DIPHENHYDRAMINE [Concomitant]
     Active Substance: DIPHENHYDRAMINE
     Dosage: ROUTE: INTRAVENOUS
  233. DIPHENHYDRAMINE [Concomitant]
     Active Substance: DIPHENHYDRAMINE
     Dosage: ROUTE: INTRAVENOUS
  234. DIPHENHYDRAMINE [Concomitant]
     Active Substance: DIPHENHYDRAMINE
     Dosage: ROUTE: INTRAVENOUS
  235. DIPHENHYDRAMINE [Concomitant]
     Active Substance: DIPHENHYDRAMINE
     Dosage: ROUTE: INTRAVENOUS
  236. DIPHENHYDRAMINE [Concomitant]
     Active Substance: DIPHENHYDRAMINE
     Dosage: ROUTE: INTRAVENOUS
  237. DIPHENHYDRAMINE [Concomitant]
     Active Substance: DIPHENHYDRAMINE
     Dosage: ROUTE: INTRAVENOUS
  238. DIPHENHYDRAMINE [Concomitant]
     Active Substance: DIPHENHYDRAMINE
     Dosage: ROUTE: INTRAVENOUS
  239. ENOXAPARIN [Concomitant]
     Active Substance: ENOXAPARIN
     Indication: Product used for unknown indication
     Dosage: ROUTE: SUBCUTANEOUS, ABDOMINAL TISSUE
  240. ENOXAPARIN [Concomitant]
     Active Substance: ENOXAPARIN
     Dosage: ROUTE: SUBCUTANEOUS, ABDOMINAL TISSUE
  241. MILRINONE [Concomitant]
     Active Substance: MILRINONE
     Indication: Product used for unknown indication
     Dosage: ROUTE: INTRAVENOUS AT 8.92 ML/HR
  242. MILRINONE [Concomitant]
     Active Substance: MILRINONE
     Dosage: ROUTE: INTRAVENOUS AT 5.95 ML/HR
  243. MILRINONE [Concomitant]
     Active Substance: MILRINONE
     Dosage: ROUTE: INTRAVENOUS AT 5.95 ML/HR
  244. FUROSEMIDE [Concomitant]
     Active Substance: FUROSEMIDE
     Indication: Product used for unknown indication
     Dosage: ROUTE: INTRAVENOUS
  245. FUROSEMIDE [Concomitant]
     Active Substance: FUROSEMIDE
     Dosage: ROUTE: INTRAVENOUS AT 5.95 ML/HR
  246. FUROSEMIDE [Concomitant]
     Active Substance: FUROSEMIDE
     Dosage: ROUTE: INTRAVENOUS AT 5.95 ML/HR

REACTIONS (12)
  - Gangrene [Unknown]
  - Post procedural complication [Unknown]
  - Livedo reticularis [Unknown]
  - Peripheral pulse decreased [Unknown]
  - Pain [Unknown]
  - Emotional distress [Unknown]
  - Impaired quality of life [Unknown]
  - Patient dissatisfaction with treatment [Unknown]
  - Vasoconstriction [Unknown]
  - Poor peripheral circulation [Unknown]
  - Autoimmune heparin-induced thrombocytopenia [Unknown]
  - Product communication issue [Unknown]
